FAERS Safety Report 7409693-8 (Version None)
Quarter: 2011Q2

REPORT INFORMATION
  Report Type: 
  Country: None (occurrence: None)
  Receive Date: 20110412
  Receipt Date: 20110331
  Transmission Date: 20111010
  Serious: No
  Sender: FDA-Public Use
  Company Number: US-JNJFOC-20110401167

PATIENT
  Sex: Male
  Weight: 74.84 kg

DRUGS (3)
  1. DURAGESIC [Suspect]
     Dosage: NDC#: 50458-0094-05
     Route: 062
  2. DURAGESIC [Suspect]
     Indication: PAIN
     Dosage: 100 UG/HR + 100 UG/HR
     Route: 062
  3. FENTANYL-100 [Suspect]
     Indication: PAIN
     Dosage: 100 UG/HR + 100 UG/HR PATCHES
     Route: 062

REACTIONS (3)
  - WRONG TECHNIQUE IN DRUG USAGE PROCESS [None]
  - PRODUCT QUALITY ISSUE [None]
  - APPLICATION SITE PERSPIRATION [None]
